FAERS Safety Report 14900717 (Version 3)
Quarter: 2018Q3

REPORT INFORMATION
  Report Type: Spontaneous
  Country: US (occurrence: US)
  Receive Date: 20180516
  Receipt Date: 20180713
  Transmission Date: 20181010
  Serious: No
  Sender: FDA-Public Use
  Company Number: US-PFIZER INC-2018199136

PATIENT
  Age: 38 Year
  Sex: Female
  Weight: 57.61 kg

DRUGS (3)
  1. EUCRISA [Suspect]
     Active Substance: CRISABOROLE
     Indication: ECZEMA
     Dosage: 2 %, TO BE APPLIED TO EFFECTED AREA OF HANDS AND ARM TWICE DAILY
     Route: 061
     Dates: start: 20180425, end: 201805
  2. EUCRISA [Suspect]
     Active Substance: CRISABOROLE
     Dosage: 2 %, TO BE APPLIED TO EFFECTED AREA OF HANDS AND ARM TWICE DAILY
     Route: 061
     Dates: start: 20180507, end: 20180510
  3. EUCRISA [Suspect]
     Active Substance: CRISABOROLE
     Dosage: 2 %, TO BE APPLIED TO EFFECTED AREA OF HANDS AND ARM TWICE DAILY
     Route: 061
     Dates: end: 201806

REACTIONS (12)
  - Drug hypersensitivity [Not Recovered/Not Resolved]
  - Scratch [Recovering/Resolving]
  - Urticaria [Unknown]
  - Pruritus [Recovering/Resolving]
  - Skin irritation [Unknown]
  - Condition aggravated [Unknown]
  - Erythema [Unknown]
  - Skin discolouration [Recovering/Resolving]
  - Rash [Unknown]
  - Swelling [Unknown]
  - Inflammation [Unknown]
  - Blister [Recovering/Resolving]

NARRATIVE: CASE EVENT DATE: 201804
